FAERS Safety Report 9401849 (Version 5)
Quarter: 2014Q1

REPORT INFORMATION
  Report Type: Report from Study
  Country: CA (occurrence: CA)
  Receive Date: 20130716
  Receipt Date: 20140130
  Transmission Date: 20141002
  Serious: Yes (Other)
  Sender: FDA-Public Use
  Company Number: CA-JNJFOC-20130706128

PATIENT
  Age: 21 Year
  Sex: Female
  Weight: 56 kg

DRUGS (5)
  1. REMICADE [Suspect]
     Indication: CROHN^S DISEASE
     Route: 042
     Dates: start: 20121015
  2. REMICADE [Suspect]
     Indication: CROHN^S DISEASE
     Route: 042
     Dates: start: 20140123
  3. REMICADE [Suspect]
     Indication: CROHN^S DISEASE
     Route: 042
     Dates: start: 20121029, end: 20131105
  4. FOLIC ACID [Concomitant]
     Route: 065
  5. CALCIUM [Concomitant]
     Route: 065

REACTIONS (5)
  - Abdominal injury [Recovering/Resolving]
  - Abdominal pain [Recovered/Resolved]
  - Vaginal discharge [Recovering/Resolving]
  - Crohn^s disease [Unknown]
  - Exposure during pregnancy [Recovered/Resolved]
